FAERS Safety Report 6579879 (Version 16)
Quarter: 2013Q3

REPORT INFORMATION
  Report Type: Spontaneous
  Country: US (occurrence: US)
  Receive Date: 20080313
  Receipt Date: 20130812
  Transmission Date: 20140515
  Serious: Yes (Death, Other)
  Sender: FDA-Public Use
  Company Number: PHEH2008US02534

PATIENT
  Age: 60 Year
  Sex: Male

DRUGS (49)
  1. AREDIA [Suspect]
  2. ZOMETA [Suspect]
  3. ACCUPRIL [Concomitant]
     Dosage: 10 MG, QD
  4. PROPULSID [Concomitant]
  5. PREVACID [Concomitant]
  6. CARDIZEM CD [Concomitant]
     Dosage: 240 MG, QD
  7. COZAAR [Concomitant]
  8. DIGITEK [Concomitant]
  9. CARDIKET [Concomitant]
  10. ASPIRIN ^BAYER^ [Concomitant]
  11. HYDROCHLOROTHIAZID [Concomitant]
  12. THALIDOMIDE [Concomitant]
     Indication: PLASMA CELL MYELOMA
  13. DEXAMETHASONE [Concomitant]
  14. DIGOXIN [Concomitant]
  15. COUMADIN [Concomitant]
  16. POTASSIUM [Concomitant]
  17. TRICOR [Concomitant]
  18. CENTRUM SILVER [Concomitant]
  19. LEXAPRO [Concomitant]
  20. VITAMIN B12 [Concomitant]
  21. HYDROXYZINE [Concomitant]
  22. TETRACYCLINE [Concomitant]
  23. PHENERGAN ^AVENTIS PHARMA^ [Concomitant]
  24. AMIODARONE [Concomitant]
  25. ZOCOR ^DIECKMANN^ [Concomitant]
  26. LASIX [Concomitant]
  27. SIMVASTATIN [Concomitant]
  28. METOPROLOL [Concomitant]
  29. TRAMADOL [Concomitant]
  30. LOMOTIL [Concomitant]
  31. VIAGRA [Concomitant]
  32. NASONEX [Concomitant]
  33. XANAX [Concomitant]
  34. LACTULOSE [Concomitant]
  35. PROTONIX ^PHARMACIA^ [Concomitant]
  36. SPIRONOLACTONE [Concomitant]
  37. SULFAMETHOXAZOLE [Concomitant]
  38. TYLENOL [Concomitant]
  39. DARVOCET-N [Concomitant]
  40. ALBUTEROL [Concomitant]
  41. MORPHINE [Concomitant]
  42. VANCOMYCIN [Concomitant]
  43. GABAPENTIN [Concomitant]
  44. BACITRACIN [Concomitant]
  45. BISACODYL [Concomitant]
  46. DUONEB [Concomitant]
  47. MILK OF MAGNESIA [Concomitant]
  48. MUPIROCIN [Concomitant]
  49. ZOFRAN [Concomitant]

REACTIONS (105)
  - Failure to thrive [Fatal]
  - Plasma cell myeloma [Fatal]
  - Renal failure [Fatal]
  - Non-small cell lung cancer [Fatal]
  - Labile hypertension [Fatal]
  - Hypertension [Fatal]
  - Osteonecrosis of jaw [Unknown]
  - Infection [Unknown]
  - Deformity [Unknown]
  - Emotional distress [Unknown]
  - Anxiety [Unknown]
  - Pain [Unknown]
  - Chest discomfort [Unknown]
  - Palpitations [Unknown]
  - Cardiomegaly [Unknown]
  - Myocardial ischaemia [Unknown]
  - Atrial fibrillation [Unknown]
  - Tachycardia [Unknown]
  - Bundle branch block right [Unknown]
  - Heart rate increased [Unknown]
  - Blood iron decreased [Unknown]
  - Peptic ulcer [Unknown]
  - Bone disorder [Unknown]
  - Gingival swelling [Unknown]
  - Anaemia [Unknown]
  - Osteoarthritis [Unknown]
  - Cerebrovascular accident [Unknown]
  - Obesity [Unknown]
  - Blood calcium decreased [Unknown]
  - Throat lesion [Unknown]
  - Balance disorder [Unknown]
  - Emphysema [Unknown]
  - Tongue disorder [Unknown]
  - Deafness [Unknown]
  - Cerebral ischaemia [Unknown]
  - Empty sella syndrome [Unknown]
  - Nasal septum deviation [Unknown]
  - Spinal osteoarthritis [Unknown]
  - Lung infiltration [Unknown]
  - Aortic valve calcification [Unknown]
  - Dilatation ventricular [Unknown]
  - Dilatation atrial [Unknown]
  - Mitral valve calcification [Unknown]
  - Mitral valve incompetence [Unknown]
  - Tricuspid valve incompetence [Unknown]
  - Pulmonary hypertension [Unknown]
  - Pericardial effusion [Unknown]
  - Sinusitis [Unknown]
  - Cyst [Unknown]
  - Cardiac failure congestive [Unknown]
  - Pulmonary oedema [Unknown]
  - Carotid intima-media thickness increased [Unknown]
  - Pleural calcification [Unknown]
  - Cerebrovascular disorder [Unknown]
  - Cerebral atrophy [Unknown]
  - Atelectasis [Unknown]
  - Chest pain [Unknown]
  - Mental status changes [Unknown]
  - Arteriosclerosis coronary artery [Unknown]
  - Type 2 diabetes mellitus [Unknown]
  - Oxygen saturation decreased [Unknown]
  - Disorientation [Unknown]
  - Staphylococcal infection [Unknown]
  - International normalised ratio increased [Unknown]
  - Hypokinesia [Unknown]
  - Fall [Unknown]
  - Contusion [Unknown]
  - Dehydration [Unknown]
  - Dyspnoea [Unknown]
  - Lethargy [Unknown]
  - Dysphonia [Unknown]
  - Local swelling [Unknown]
  - Skin ulcer [Unknown]
  - Cellulitis [Unknown]
  - Skin cancer [Unknown]
  - Skin lesion [Unknown]
  - Chronic obstructive pulmonary disease [Unknown]
  - Transient ischaemic attack [Unknown]
  - Neuropathy peripheral [Unknown]
  - Dental plaque [Unknown]
  - Thrombosis [Unknown]
  - Arterial insufficiency [Unknown]
  - Arterial occlusive disease [Unknown]
  - Depression [Unknown]
  - Haemorrhoids [Unknown]
  - Lymphadenopathy mediastinal [Unknown]
  - Coagulopathy [Unknown]
  - Polyp [Unknown]
  - Asterixis [Unknown]
  - Diverticulum [Unknown]
  - Encephalopathy [Unknown]
  - Alcoholic liver disease [Unknown]
  - Gastrointestinal haemorrhage [Unknown]
  - Cardiomyopathy [Unknown]
  - Renal failure chronic [Unknown]
  - Pneumonia [Unknown]
  - Hyperlipidaemia [Unknown]
  - Hypoalbuminaemia [Unknown]
  - Ascites [Unknown]
  - Gynaecomastia [Unknown]
  - Breast calcifications [Unknown]
  - Erectile dysfunction [Unknown]
  - Herpes zoster [Unknown]
  - Visual acuity reduced [Unknown]
  - Cataract [Unknown]
